FAERS Safety Report 18441893 (Version 4)
Quarter: 2021Q1

REPORT INFORMATION
  Report Type: Spontaneous
  Country: US (occurrence: US)
  Receive Date: 20201029
  Receipt Date: 20210111
  Transmission Date: 20210419
  Serious: Yes (Other)
  Sender: FDA-Public Use
  Company Number: US-FARMAPROD-202010-1330

PATIENT
  Sex: Female

DRUGS (2)
  1. OXERVATE [Suspect]
     Active Substance: CENEGERMIN-BKBJ
     Indication: NEUROTROPHIC KERATOPATHY
     Route: 047
     Dates: start: 20200226, end: 202004
  2. OXERVATE [Suspect]
     Active Substance: CENEGERMIN-BKBJ
     Indication: HYPOAESTHESIA EYE
     Route: 047
     Dates: start: 20200924, end: 202012

REACTIONS (9)
  - Illness [Not Recovered/Not Resolved]
  - Chest pain [Not Recovered/Not Resolved]
  - Spinal operation [Unknown]
  - Product storage error [Unknown]
  - Peripheral nerve operation [Unknown]
  - Therapy interrupted [Unknown]
  - Herpes zoster [Not Recovered/Not Resolved]
  - Product administration error [Unknown]
  - Eye operation [Unknown]
